FAERS Safety Report 16732902 (Version 1)
Quarter: 2019Q3

REPORT INFORMATION
  Report Type: Spontaneous
  Country: US (occurrence: US)
  Receive Date: 20190823
  Receipt Date: 20190823
  Transmission Date: 20191005
  Serious: Yes (Other)
  Sender: FDA-Public Use
  Company Number: US-TEVA-2019-US-1097511

PATIENT
  Sex: Female

DRUGS (20)
  1. KCL ER [Concomitant]
  2. CYCLOBENZAPRINE. [Concomitant]
     Active Substance: CYCLOBENZAPRINE
  3. ALBUTEROL. [Concomitant]
     Active Substance: ALBUTEROL
  4. LEVOTHYROXINE. [Concomitant]
     Active Substance: LEVOTHYROXINE
  5. CELECOXIB. [Concomitant]
     Active Substance: CELECOXIB
  6. AUSTEDO [Suspect]
     Active Substance: DEUTETRABENAZINE
     Indication: TARDIVE DYSKINESIA
     Dosage: 48 MILLIGRAM DAILY;
     Dates: start: 201711
  7. GLIPIZIE XL [Concomitant]
  8. SPIRIVA [Concomitant]
     Active Substance: TIOTROPIUM BROMIDE MONOHYDRATE
  9. CITALOPRAM [Concomitant]
     Active Substance: CITALOPRAM HYDROBROMIDE
  10. TRAMADOL. [Concomitant]
     Active Substance: TRAMADOL
  11. SYMBICORT [Concomitant]
     Active Substance: BUDESONIDE\FORMOTEROL FUMARATE DIHYDRATE
  12. ATROVASTATIN [Concomitant]
     Active Substance: ATORVASTATIN CALCIUM
  13. NYSTATIN. [Concomitant]
     Active Substance: NYSTATIN
  14. FOLIC ACID. [Concomitant]
     Active Substance: FOLIC ACID
  15. LISINOPRIL. [Concomitant]
     Active Substance: LISINOPRIL
  16. MONTELUKAST [Concomitant]
     Active Substance: MONTELUKAST SODIUM
  17. OMEPRAZOLE. [Concomitant]
     Active Substance: OMEPRAZOLE
  18. OXYBUTYNIN ER [Concomitant]
     Active Substance: OXYBUTYNIN
  19. AZITHROMYCIN ANHYDROUS. [Concomitant]
     Active Substance: AZITHROMYCIN ANHYDROUS
  20. FENOFIBRATE. [Concomitant]
     Active Substance: FENOFIBRATE

REACTIONS (3)
  - Urinary tract infection [Unknown]
  - Urinary incontinence [Unknown]
  - Dysuria [Unknown]

NARRATIVE: CASE EVENT DATE: 2019
